FAERS Safety Report 8346166-2 (Version None)
Quarter: 2012Q2

REPORT INFORMATION
  Report Type: 
  Country: None (occurrence: None)
  Receive Date: 20120509
  Receipt Date: 20120504
  Transmission Date: 20120825
  Serious: Yes (Death, Hospitalization)
  Sender: FDA-Public Use
  Company Number: US-CELGENEUS-163-50794-12050483

PATIENT
  Age: 56 Year
  Sex: Female
  Weight: 60.8 kg

DRUGS (3)
  1. VORINOSTAT [Suspect]
     Dosage: 400 MILLIGRAM
     Route: 048
     Dates: start: 20111107, end: 20111113
  2. GEMTUZUMAB OZOGAMICIN [Suspect]
     Dosage: 3 MILLIGRAM/SQ. METER
     Route: 041
     Dates: start: 20111107, end: 20111110
  3. VIDAZA [Suspect]
     Dosage: 75 MILLIGRAM/SQ. METER
     Route: 058
     Dates: start: 20111107, end: 20111113

REACTIONS (4)
  - SUPRAVENTRICULAR TACHYCARDIA [None]
  - PNEUMONITIS [None]
  - PNEUMOTHORAX [None]
  - ACUTE MYELOID LEUKAEMIA [None]
